FAERS Safety Report 13575117 (Version 1)
Quarter: 2017Q2

REPORT INFORMATION
  Report Type: Spontaneous
  Country: AR (occurrence: AR)
  Receive Date: 20170523
  Receipt Date: 20170523
  Transmission Date: 20170830
  Serious: Yes (Other)
  Sender: FDA-Public Use
  Company Number: AR-ROCHE-1938597

PATIENT
  Age: 71 Year
  Sex: Female

DRUGS (1)
  1. XOLAIR [Suspect]
     Active Substance: OMALIZUMAB
     Indication: ASTHMA
     Dosage: 150 MG VIAL
     Route: 065
     Dates: start: 201006

REACTIONS (3)
  - Dyslipidaemia [Unknown]
  - Chest pain [Recovered/Resolved]
  - Coronary artery disease [Unknown]
